FAERS Safety Report 7978394-X (Version None)
Quarter: 2011Q4

REPORT INFORMATION
  Report Type: 
  Country: None (occurrence: None)
  Receive Date: 20111209
  Receipt Date: 20111123
  Transmission Date: 20120403
  Serious: Yes (Hospitalization)
  Sender: FDA-Public Use
  Company Number: 2011-4647

PATIENT
  Age: 9 Year
  Sex: Male
  Weight: 24.4 kg

DRUGS (3)
  1. VYVANSE (DUROPHET) [Concomitant]
  2. INCRELEX [Suspect]
     Indication: GROWTH HORMONE DEFICIENCY
     Dosage: 56 UNITS (56 UNITS, 1 IN 1 D)
     Dates: start: 20111115, end: 20111117
  3. INCRELEX [Suspect]
     Indication: GROWTH HORMONE DEFICIENCY
     Dosage: 56 UNITS (56 UNITS, 1 IN 1 D)
     Dates: start: 20110601

REACTIONS (2)
  - BETA HAEMOLYTIC STREPTOCOCCAL INFECTION [None]
  - PNEUMONIA STREPTOCOCCAL [None]
